FAERS Safety Report 7743539-3 (Version None)
Quarter: 2011Q3

REPORT INFORMATION
  Report Type: 
  Country: None (occurrence: None)
  Receive Date: 20110912
  Receipt Date: 20110831
  Transmission Date: 20111222
  Serious: Yes (Death)
  Sender: FDA-Public Use
  Company Number: DE-ROCHE-796614

PATIENT
  Sex: Male
  Weight: 84 kg

DRUGS (4)
  1. METOPROLOL SUCCINATE [Concomitant]
     Indication: BLOOD PRESSURE INCREASED
     Dates: end: 20110629
  2. PENTAERYTHRITOL TETRANITRATE [Concomitant]
     Indication: BLOOD PRESSURE INCREASED
     Dates: end: 20110629
  3. ALLOPURINOL [Concomitant]
     Indication: GOUT
     Dates: start: 20110326, end: 20110629
  4. CAPECITABINE [Suspect]
     Dosage: 1ST CYCLE
     Route: 048
     Dates: start: 20110616, end: 20110627

REACTIONS (3)
  - RENAL FAILURE ACUTE [None]
  - CIRCULATORY COLLAPSE [None]
  - DIARRHOEA [None]
